FAERS Safety Report 9439348 (Version 1)
Quarter: 2013Q3

REPORT INFORMATION
  Report Type: Spontaneous
  Country: BR (occurrence: BR)
  Receive Date: 20130805
  Receipt Date: 20130805
  Transmission Date: 20140515
  Serious: Yes (Other)
  Sender: FDA-Public Use
  Company Number: BR-AMGEN-BRASP2013053976

PATIENT
  Age: 50 Year
  Sex: Female
  Weight: 75 kg

DRUGS (2)
  1. ENBREL [Suspect]
     Indication: RHEUMATOID ARTHRITIS
     Dosage: 50 MG, ONCE WEEKLY
     Route: 058
     Dates: start: 201204
  2. PREDNISONE [Concomitant]
     Indication: PAIN
     Dosage: UNK

REACTIONS (4)
  - Rheumatoid arthritis [Unknown]
  - Oral pain [Unknown]
  - Tooth disorder [Unknown]
  - Stomatitis [Unknown]
